FAERS Safety Report 8548619 (Version 2)
Quarter: 2012Q4

REPORT INFORMATION
  Report Type: 
  Country: US (occurrence: US)
  Receive Date: 20120507
  Receipt Date: 20120907
  Transmission Date: 20130627
  Serious: Yes (Hospitalization)
  Sender: FDA-Public Use
  Company Number: US-BAYER-2012-043000

PATIENT
  Age: 42 Year
  Sex: Female
  Weight: 77.1 kg

DRUGS (3)
  1. YAZ [Suspect]
     Indication: MENOPAUSAL SYMPTOMS
     Dosage: UNK
     Dates: start: 200709, end: 20071217
  2. HYDROCODONE [Concomitant]
     Dosage: UNK
     Dates: start: 20071217
  3. TESTOSTERONE [Concomitant]
     Indication: MENOPAUSAL SYMPTOMS
     Dosage: 5%
     Route: 061
     Dates: start: 20071203

REACTIONS (8)
  - Deep vein thrombosis [None]
  - Injury [None]
  - Pain [None]
  - Oedema peripheral [None]
  - Pain in extremity [None]
  - Chest pain [None]
  - Chest discomfort [None]
  - Mental disorder [None]
